FAERS Safety Report 6565960-1 (Version None)
Quarter: 2010Q1

REPORT INFORMATION
  Report Type: 
  Country: None (occurrence: None)
  Receive Date: 20100129
  Receipt Date: 20100129
  Transmission Date: 20100710
  Serious: Yes (Hospitalization)
  Sender: FDA-Public Use
  Company Number: None

PATIENT
  Age: 61 Year
  Sex: Male
  Weight: 100 kg

DRUGS (2)
  1. CYCLOBENZAPRINE [Suspect]
     Dosage: 10 MG TID PO
     Route: 048
     Dates: start: 20081201, end: 20100120
  2. SERTRALINE HCL [Suspect]
     Indication: DEPRESSION
     Dosage: 100 MG BID PO
     Route: 048
     Dates: start: 20050225, end: 20100120

REACTIONS (1)
  - DIZZINESS [None]
